FAERS Safety Report 16873393 (Version 11)
Quarter: 2021Q1

REPORT INFORMATION
  Report Type: Spontaneous
  Country: US (occurrence: US)
  Receive Date: 20191001
  Receipt Date: 20210331
  Transmission Date: 20210419
  Serious: No
  Sender: FDA-Public Use
  Company Number: US-PFIZER INC-2019423796

PATIENT
  Age: 39 Year
  Sex: Female
  Weight: 62.14 kg

DRUGS (2)
  1. RELPAX [Suspect]
     Active Substance: ELETRIPTAN HYDROBROMIDE
     Indication: MIGRAINE
     Dosage: 40 MG, AS NEEDED (1 TABLET AT ONSET OF MIGRAINE; REPEAT X1 IN 2HRS IF NEEDED, MAX 2 IN 24HRS)
     Route: 048
  2. RELPAX [Suspect]
     Active Substance: ELETRIPTAN HYDROBROMIDE
     Dosage: 40 MG, AS NEEDED (1 TABLET AT ONSET OF MIGRAINE; REPEAT X1 IN 2HRS IF NEEDED, MAX 2 IN 24HRS)
     Route: 048

REACTIONS (2)
  - Drug ineffective [Unknown]
  - Expired product administered [Unknown]
